FAERS Safety Report 14819904 (Version 2)
Quarter: 2018Q3

REPORT INFORMATION
  Report Type: Spontaneous
  Country: JP (occurrence: JP)
  Receive Date: 20180427
  Receipt Date: 20180705
  Transmission Date: 20181010
  Serious: Yes (Hospitalization)
  Sender: FDA-Public Use
  Company Number: JP-JNJFOC-20180322602

PATIENT
  Age: 58 Year
  Sex: Male
  Weight: 87 kg

DRUGS (13)
  1. INVEGA [Suspect]
     Active Substance: PALIPERIDONE
     Indication: SCHIZOPHRENIA
     Dosage: PALIPERIDONE: 3 MG
     Route: 048
     Dates: start: 20171205, end: 20180304
  2. CONTOMIN [Suspect]
     Active Substance: CHLORPROMAZINE
     Indication: SCHIZOPHRENIA
     Route: 048
     Dates: start: 20171107, end: 20180304
  3. CONTOMIN [Suspect]
     Active Substance: CHLORPROMAZINE
     Indication: SCHIZOPHRENIA
     Route: 048
     Dates: start: 20180305, end: 20180309
  4. EBRANTIL [Concomitant]
     Active Substance: URAPIDIL
     Route: 048
     Dates: end: 20180310
  5. CARBAMAZEPINE. [Concomitant]
     Active Substance: CARBAMAZEPINE
     Route: 048
     Dates: start: 20131029, end: 20180309
  6. FLUNITRAZEPAM [Concomitant]
     Active Substance: FLUNITRAZEPAM
     Route: 048
     Dates: start: 20170723, end: 20180309
  7. INVEGA [Suspect]
     Active Substance: PALIPERIDONE
     Indication: SCHIZOPHRENIA
     Dosage: PALIPERIDONE: 3 MG
     Route: 048
     Dates: start: 20180305, end: 20180309
  8. ETIZOLAM [Concomitant]
     Active Substance: ETIZOLAM
     Route: 048
     Dates: start: 20170419, end: 20180309
  9. UBRETID [Concomitant]
     Active Substance: DISTIGMINE BROMIDE
     Route: 048
     Dates: end: 20180310
  10. CONTOMIN [Suspect]
     Active Substance: CHLORPROMAZINE
     Indication: SCHIZOPHRENIA
     Route: 048
     Dates: start: 20121029
  11. ETIZOLAM [Concomitant]
     Active Substance: ETIZOLAM
     Route: 048
     Dates: start: 20151204
  12. QUAZEPAM. [Concomitant]
     Active Substance: QUAZEPAM
     Route: 048
     Dates: start: 20130723, end: 20180309
  13. INVEGA [Suspect]
     Active Substance: PALIPERIDONE
     Indication: SCHIZOPHRENIA
     Dosage: PALIPERIDONE: 3 MG
     Route: 048
     Dates: start: 20180311, end: 20180313

REACTIONS (1)
  - Neuroleptic malignant syndrome [Recovered/Resolved]

NARRATIVE: CASE EVENT DATE: 20180311
